FAERS Safety Report 8903912 (Version 1)
Quarter: 2012Q4

REPORT INFORMATION
  Report Type: 
  Country: MX (occurrence: MX)
  Receive Date: 20121113
  Receipt Date: 20121113
  Transmission Date: 20130627
  Serious: Yes (Other)
  Sender: FDA-Public Use
  Company Number: PHHY2012MX104377

PATIENT
  Sex: Male

DRUGS (2)
  1. DIOVAN [Suspect]
     Indication: HYPERTENSION
     Dosage: 160 mg, Per day
     Dates: start: 20120925, end: 20121019
  2. GALVUS MET [Suspect]
     Indication: DIABETES MELLITUS
     Dosage: 1 DF (850/50 mg), Per day
     Dates: start: 20110925, end: 20121019

REACTIONS (3)
  - Cardiac failure [Recovered/Resolved]
  - Hypertension [Recovered/Resolved]
  - Fatigue [Recovered/Resolved]
